FAERS Safety Report 9404144 (Version 4)
Quarter: 2013Q3

REPORT INFORMATION
  Report Type: Spontaneous
  Country: DE (occurrence: None)
  Receive Date: 20130711
  Receipt Date: 20130926
  Transmission Date: 20140515
  Serious: Yes (Death)
  Sender: FDA-Public Use
  Company Number: 1307-879

PATIENT
  Age: 66 Year
  Sex: Male

DRUGS (4)
  1. EYLEA (AFLIBERCEPT) (INJECTION) (AFLIBERCEPT) [Suspect]
     Indication: AGE-RELATED MACULAR DEGENERATION
     Route: 031
     Dates: start: 20130625, end: 20130625
  2. PLAVIX (CLOPIDOGREL BISULFATE) [Concomitant]
  3. WARFARIN (WARFARIN) [Concomitant]
  4. BAYASPIRIN (ACETYLSALICYLIC ACID) (ACETYLSALICYLIC ACID) [Concomitant]

REACTIONS (2)
  - Sudden death [None]
  - Cardiac disorder [None]
